FAERS Safety Report 5166067-0 (Version None)
Quarter: 2006Q4

REPORT INFORMATION
  Report Type: 
  Country: None (occurrence: None)
  Receive Date: 20061206
  Receipt Date: 20061120
  Transmission Date: 20070319
  Serious: Yes (Other)
  Sender: FDA-Public Use
  Company Number: JP-MERCK-0611USA06277

PATIENT

DRUGS (2)
  1. PRIMAXIN [Suspect]
     Indication: POSTOPERATIVE INFECTION
     Route: 042
  2. VANCOMYCIN [Concomitant]
     Indication: POSTOPERATIVE INFECTION
     Route: 042

REACTIONS (1)
  - BONE MARROW FAILURE [None]
